FAERS Safety Report 8132781-8 (Version None)
Quarter: 2012Q1

REPORT INFORMATION
  Report Type: 
  Country: None (occurrence: None)
  Receive Date: 20120208
  Receipt Date: 20120125
  Transmission Date: 20120608
  Serious: Yes (Hospitalization, Other)
  Sender: FDA-Public Use
  Company Number: INT_00053_2012

PATIENT
  Age: 8 Year
  Sex: Male

DRUGS (2)
  1. I.V. SOLUTION ADDITIVES [Concomitant]
  2. CEFTRIAXONE [Suspect]
     Indication: PRODUCT USED FOR UNKNOWN INDICATION
     Dosage: (1 G QD INTRAVENOUS (NOT OTHERWISE SPECIFIED)
     Route: 042

REACTIONS (5)
  - APATHY [None]
  - SOMNOLENCE [None]
  - MENTAL STATUS CHANGES [None]
  - DEHYDRATION [None]
  - TOXIC ENCEPHALOPATHY [None]
